FAERS Safety Report 24413256 (Version 1)
Quarter: 2024Q4

REPORT INFORMATION
  Report Type: Spontaneous
  Country: BR (occurrence: BR)
  Receive Date: 20241008
  Receipt Date: 20241008
  Transmission Date: 20250115
  Serious: Yes (Hospitalization)
  Sender: NOVARTIS
  Company Number: BR-002147023-NVSC2024BR196645

PATIENT
  Age: 89 Year
  Sex: Male

DRUGS (2)
  1. ELTROMBOPAG OLAMINE [Suspect]
     Active Substance: ELTROMBOPAG OLAMINE
     Indication: Chronic leukaemia
     Dosage: 1 DOSAGE FORM, QD (14  TABLETS)
     Route: 065
     Dates: start: 202408
  2. METOPROLOL SUCCINATE [Concomitant]
     Active Substance: METOPROLOL SUCCINATE
     Indication: Hypertension
     Dosage: 1 DOSAGE FORM, QD
     Route: 065

REACTIONS (2)
  - Nosocomial infection [Unknown]
  - Off label use [Unknown]

NARRATIVE: CASE EVENT DATE: 20240930
